FAERS Safety Report 6102197-4 (Version None)
Quarter: 2009Q1

REPORT INFORMATION
  Report Type: 
  Country: None (occurrence: None)
  Receive Date: 20090304
  Receipt Date: 20090227
  Transmission Date: 20090719
  Serious: Yes (Death, Life-Threatening, Hospitalization)
  Sender: FDA-Public Use
  Company Number: DE-BRISTOL-MYERS SQUIBB COMPANY-14327845

PATIENT
  Age: 62 Year
  Sex: Male
  Weight: 77 kg

DRUGS (4)
  1. PACLITAXEL [Suspect]
     Indication: NON-SMALL CELL LUNG CANCER
     Dosage: WITHDRAWN AFTER 14AUG08
  2. CISPLATIN [Suspect]
     Indication: NON-SMALL CELL LUNG CANCER
     Dosage: FIRST ADMINSTRATION ON JUN2008,DOSE REDUCED THEN WITHDRAWN AFTER 14AUG08
     Route: 042
     Dates: start: 20080807, end: 20080814
  3. VINORELBINE [Suspect]
     Indication: NON-SMALL CELL LUNG CANCER
     Dosage: DOSE REDUCED THEN WITHDRAWN AFTER 14AUG08
     Route: 042
     Dates: start: 20080807, end: 20080814
  4. RADIOTHERAPY [Suspect]
     Indication: NON-SMALL CELL LUNG CANCER
     Dosage: WITHDRAWN AFTER 14AUG08.1DF-TOTAL 51 GY; DAILY 1.5 (UNTIL 26AUG08), 2 GY THEREAFTER
     Dates: start: 20080806, end: 20080829

REACTIONS (5)
  - CARDIAC FAILURE [None]
  - FEBRILE NEUTROPENIA [None]
  - PLEURAL EFFUSION [None]
  - PNEUMONIA [None]
  - SEPSIS [None]
